FAERS Safety Report 21157136 (Version 2)
Quarter: 2023Q1

REPORT INFORMATION
  Report Type: Spontaneous
  Country: US (occurrence: US)
  Receive Date: 20220801
  Receipt Date: 20230110
  Transmission Date: 20230417
  Serious: Yes (Hospitalization, Other)
  Sender: FDA-Public Use
  Company Number: US-PFIZER INC-202201018565

PATIENT
  Age: 31 Year
  Sex: Male

DRUGS (1)
  1. XELJANZ [Suspect]
     Active Substance: TOFACITINIB CITRATE
     Dosage: 5 MG, 2X/DAY
     Route: 048
     Dates: start: 20200824

REACTIONS (7)
  - Multiple sclerosis [Unknown]
  - COVID-19 [Unknown]
  - Vertigo [Unknown]
  - Nasopharyngitis [Recovered/Resolved]
  - Condition aggravated [Unknown]
  - Eczema [Unknown]
  - Quality of life decreased [Unknown]

NARRATIVE: CASE EVENT DATE: 20220601
